FAERS Safety Report 4434361-4 (Version None)
Quarter: 2004Q3

REPORT INFORMATION
  Report Type: 
  Country: None (occurrence: None)
  Receive Date: 20040825
  Receipt Date: 20040809
  Transmission Date: 20050211
  Serious: No
  Sender: FDA-Public Use
  Company Number: USA030125376

PATIENT
  Sex: Female

DRUGS (17)
  1. FORTEO [Suspect]
     Indication: OSTEOPOROSIS
     Dosage: 20 UG DAY
     Dates: start: 20021220
  2. AGRYLIN [Concomitant]
  3. AMITRIPTYLINE HCL [Concomitant]
  4. SYNTHROID [Concomitant]
  5. TIMOPTIC [Concomitant]
  6. VIOXX [Concomitant]
  7. AXID [Concomitant]
  8. PROTONIX [Concomitant]
  9. HYDROXYUREA [Concomitant]
  10. PILOCARPINE [Concomitant]
  11. ALPHAGAN [Concomitant]
  12. MULTIVITAMIN [Concomitant]
  13. CITRACAL + D [Concomitant]
  14. VITAMIN E [Concomitant]
  15. VITAMIN E [Concomitant]
  16. VITAMIN C [Concomitant]
  17. GLUCOSAMINE [Concomitant]

REACTIONS (1)
  - HEADACHE [None]
